FAERS Safety Report 5638738-0 (Version None)
Quarter: 2008Q1

REPORT INFORMATION
  Report Type: 
  Country: None (occurrence: None)
  Receive Date: 20080221
  Receipt Date: 20080221
  Transmission Date: 20080703
  Serious: Yes (Hospitalization)
  Sender: FDA-Public Use
  Company Number: None

PATIENT
  Age: 44 Year
  Sex: Male
  Weight: 74.8435 kg

DRUGS (1)
  1. FUZEON [Suspect]
     Indication: HIV INFECTION
     Dosage: 1 ML Q12H SQ
     Route: 058
     Dates: start: 20041112, end: 20080128

REACTIONS (3)
  - ABSCESS [None]
  - INDURATION [None]
  - MASS [None]
